FAERS Safety Report 18429624 (Version 1)
Quarter: 2020Q4

REPORT INFORMATION
  Report Type: Spontaneous
  Country: GB (occurrence: GB)
  Receive Date: 20201027
  Receipt Date: 20201027
  Transmission Date: 20210114
  Serious: Yes (Hospitalization)
  Sender: FDA-Public Use
  Company Number: GB-TEVA-2020-GB-1842190

PATIENT
  Age: 71 Year
  Sex: Male

DRUGS (3)
  1. PREDNISOLONE. [Suspect]
     Active Substance: PREDNISOLONE
     Indication: CHRONIC OBSTRUCTIVE PULMONARY DISEASE
     Dosage: AVERAGE OF 3-4 SHORT COURSES PER YEAR
     Route: 048
  2. LIPOSOMAL AMPHOTERICIN B [Suspect]
     Active Substance: AMPHOTERICIN B
     Indication: LEISHMANIASIS
     Dosage: 3 MG/KG DAILY;
     Route: 042
  3. SALMETEROL/FLUTICASONE PROPIONATE [Suspect]
     Active Substance: FLUTICASONE PROPIONATE\SALMETEROL XINAFOATE
     Indication: CHRONIC OBSTRUCTIVE PULMONARY DISEASE
     Route: 050

REACTIONS (5)
  - Dysphonia [Recovered/Resolved]
  - Laryngitis [Recovering/Resolving]
  - Dysphagia [Recovered/Resolved]
  - Renal impairment [Recovering/Resolving]
  - Leishmaniasis [Recovering/Resolving]
